FAERS Safety Report 16006871 (Version 1)
Quarter: 2019Q1

REPORT INFORMATION
  Report Type: Report from Study
  Country: US (occurrence: US)
  Receive Date: 20190222
  Receipt Date: 20190222
  Transmission Date: 20190418
  Serious: Yes (Hospitalization, Other)
  Sender: FDA-Public Use
  Company Number: US-ASTRAZENECA-2017SE63470

PATIENT
  Age: 22038 Day
  Sex: Male
  Weight: 79.8 kg

DRUGS (2)
  1. BRILINTA [Suspect]
     Active Substance: TICAGRELOR
     Indication: CORONARY ARTERY OCCLUSION
     Route: 048
     Dates: start: 2011, end: 20190126
  2. BRILINTA [Suspect]
     Active Substance: TICAGRELOR
     Indication: STENT PLACEMENT
     Route: 048
     Dates: start: 2011, end: 20190126

REACTIONS (17)
  - Hip fracture [Unknown]
  - Off label use [Unknown]
  - Therapy cessation [Not Recovered/Not Resolved]
  - Product use issue [Unknown]
  - Muscle spasms [Unknown]
  - Bradycardia [Unknown]
  - Feeling abnormal [Unknown]
  - Haemorrhage [Unknown]
  - Headache [Unknown]
  - Heart rate increased [Unknown]
  - Road traffic accident [Unknown]
  - Coronary artery occlusion [Unknown]
  - Hypertension [Unknown]
  - Vertigo [Unknown]
  - Hypotension [Unknown]
  - Vomiting [Unknown]
  - Fall [Unknown]

NARRATIVE: CASE EVENT DATE: 20190126
